FAERS Safety Report 16648270 (Version 3)
Quarter: 2019Q4

REPORT INFORMATION
  Report Type: Spontaneous
  Country: IT (occurrence: IT)
  Receive Date: 20190730
  Receipt Date: 20191008
  Transmission Date: 20200122
  Serious: Yes (Other)
  Sender: FDA-Public Use
  Company Number: IT-AMGEN-ITASP2019119050

PATIENT
  Age: 41 Year
  Sex: Female
  Weight: 51 kg

DRUGS (2)
  1. AMGEVITA [Suspect]
     Active Substance: ADALIMUMAB
     Indication: CROHN^S DISEASE
     Dosage: 80 MILLIGRAM
     Route: 058
     Dates: start: 20190101, end: 20190717
  2. MEDROL [Concomitant]
     Active Substance: METHYLPREDNISOLONE
     Dosage: 4 MILLIGRAM
     Route: 048

REACTIONS (5)
  - Diarrhoea [Unknown]
  - Crohn^s disease [Unknown]
  - Drug ineffective [Unknown]
  - Faecal calprotectin increased [Unknown]
  - Injection site pain [Unknown]

NARRATIVE: CASE EVENT DATE: 20190101
